FAERS Safety Report 17482644 (Version 2)
Quarter: 2020Q2

REPORT INFORMATION
  Report Type: Report from Study
  Country: IN (occurrence: IN)
  Receive Date: 20200302
  Receipt Date: 20200617
  Transmission Date: 20200713
  Serious: Yes (Hospitalization)
  Sender: FDA-Public Use
  Company Number: NVSC2020IN049427

PATIENT
  Age: 51 Year
  Sex: Male
  Weight: 72 kg

DRUGS (8)
  1. ASPRIN [Concomitant]
     Active Substance: ASPIRIN
     Indication: PROPHYLAXIS
     Dosage: 75 MG, QD
     Route: 048
     Dates: start: 20191021
  2. ATORVASTATIN [Concomitant]
     Active Substance: ATORVASTATIN
     Indication: PROPHYLAXIS
     Dosage: 40 MG, QD
     Route: 048
     Dates: start: 20191025
  3. ALPRAZOLAM. [Concomitant]
     Active Substance: ALPRAZOLAM
     Indication: ANXIETY
     Dosage: UNK
     Route: 048
     Dates: start: 20200205
  4. SACUBITRIL,VALSARTAN [Suspect]
     Active Substance: SACUBITRIL\VALSARTAN
     Indication: ACUTE MYOCARDIAL INFARCTION
     Dosage: UNK
     Route: 048
     Dates: start: 20191023, end: 20200207
  5. TICAGRELOR. [Concomitant]
     Active Substance: TICAGRELOR
     Indication: PROPHYLAXIS
     Dosage: 90 MG, BID
     Route: 048
     Dates: start: 20200205
  6. METOPROLOL. [Concomitant]
     Active Substance: METOPROLOL
     Indication: PROPHYLAXIS
     Dosage: 13 MG, QD
     Route: 048
     Dates: start: 20191020
  7. SACUBITRIL,VALSARTAN [Suspect]
     Active Substance: SACUBITRIL\VALSARTAN
     Dosage: UNK
     Route: 048
     Dates: start: 20200208
  8. PANTOPRAZOLE [Concomitant]
     Active Substance: PANTOPRAZOLE
     Indication: PROPHYLAXIS
     Dosage: 40 MG, QD
     Route: 048
     Dates: start: 20191018

REACTIONS (3)
  - Hypotension [Recovered/Resolved]
  - Hyponatraemia [Recovered/Resolved]
  - Urosepsis [Recovered/Resolved]

NARRATIVE: CASE EVENT DATE: 20200215
